FAERS Safety Report 19436902 (Version 2)
Quarter: 2021Q4

REPORT INFORMATION
  Report Type: Other
  Country: CA (occurrence: CA)
  Receive Date: 20210619
  Receipt Date: 20211207
  Transmission Date: 20220303
  Serious: Yes (Other)
  Sender: FDA-Public Use
  Company Number: CA-CELLTRION INC.-2021CA007982

PATIENT

DRUGS (12)
  1. RITUXIMAB [Suspect]
     Active Substance: RITUXIMAB
     Indication: Rheumatoid arthritis
     Dosage: 1000 MG 1 EVERY 6 MONTHS
     Route: 041
  2. AMINOBENZOIC ACID [Concomitant]
     Active Substance: AMINOBENZOIC ACID
  3. LORAZEPAM [Concomitant]
     Active Substance: LORAZEPAM
  4. CALCIUM CARBONATE [Concomitant]
     Active Substance: CALCIUM CARBONATE
     Dosage: 2 EVERY 1 DAY
     Route: 048
  5. CELEBREX [Concomitant]
     Active Substance: CELECOXIB
     Indication: Swelling
     Dosage: 2 EVERY 1 DAY
     Route: 065
  6. CELEBREX [Concomitant]
     Active Substance: CELECOXIB
     Indication: Pain
  7. CLONAZEPAM [Concomitant]
     Active Substance: CLONAZEPAM
     Dosage: 2 EVERY 1 DAY
     Route: 065
  8. FOLIC ACID [Concomitant]
     Active Substance: FOLIC ACID
  9. MAGNESIUM [Concomitant]
     Active Substance: MAGNESIUM
  10. PANTOPRAZOLE SODIUM [Concomitant]
     Active Substance: PANTOPRAZOLE SODIUM
     Indication: Abdominal discomfort
     Dosage: 1 EVERY 1 DAYS
     Route: 065
  11. PANTOPRAZOLE MAGNESIUM [Concomitant]
     Active Substance: PANTOPRAZOLE MAGNESIUM
     Dosage: UNK
     Route: 065
  12. VITAMIN D3 [Concomitant]
     Active Substance: CHOLECALCIFEROL

REACTIONS (14)
  - Blood creatinine decreased [Unknown]
  - Haematocrit decreased [Unknown]
  - Haemoglobin decreased [Unknown]
  - Immunoglobulins increased [Unknown]
  - Joint stiffness [Unknown]
  - Lymphocyte count decreased [Unknown]
  - Musculoskeletal discomfort [Unknown]
  - Red blood cell count decreased [Unknown]
  - Red blood cell sedimentation rate increased [Unknown]
  - White blood cell count decreased [Unknown]
  - Abdominal pain [Unknown]
  - Arthralgia [Unknown]
  - Gastrointestinal disorder [Unknown]
  - Off label use [Unknown]
